FAERS Safety Report 9949275 (Version 3)
Quarter: 2014Q1

REPORT INFORMATION
  Report Type: Spontaneous
  Country: US (occurrence: US)
  Receive Date: 20140304
  Receipt Date: 20140331
  Transmission Date: 20141002
  Serious: No
  Sender: FDA-Public Use
  Company Number: US-PFIZER INC-2014060081

PATIENT
  Sex: Female
  Weight: 98.4 kg

DRUGS (1)
  1. CELEBREX [Suspect]
     Dosage: 200 MG, UNK
     Route: 048

REACTIONS (2)
  - Drug ineffective [Recovered/Resolved]
  - Expired drug administered [Unknown]
